FAERS Safety Report 20907791 (Version 3)
Quarter: 2022Q2

REPORT INFORMATION
  Report Type: Spontaneous
  Country: JP (occurrence: JP)
  Receive Date: 20220602
  Receipt Date: 20220623
  Transmission Date: 20220721
  Serious: Yes (Hospitalization, Other)
  Sender: FDA-Public Use
  Company Number: JP-FERRINGPH-2022FE02716

PATIENT

DRUGS (2)
  1. DEGARELIX [Suspect]
     Active Substance: DEGARELIX
     Indication: Prostate cancer
     Dosage: 480 MG
     Route: 058
     Dates: start: 20210125, end: 20220522
  2. CASODEX [Concomitant]
     Active Substance: BICALUTAMIDE
     Indication: Product used for unknown indication
     Route: 048

REACTIONS (2)
  - Ileus [Recovered/Resolved]
  - Abdominal symptom [Recovered/Resolved]

NARRATIVE: CASE EVENT DATE: 20220522
